FAERS Safety Report 8632016 (Version 26)
Quarter: 2015Q4

REPORT INFORMATION
  Report Type: Report from Study
  Country: CA (occurrence: CA)
  Receive Date: 20120625
  Receipt Date: 20151206
  Transmission Date: 20160305
  Serious: Yes (Hospitalization, Other)
  Sender: FDA-Public Use
  Company Number: PHHY2010CA12589

PATIENT
  Age: 54 Year
  Sex: Female

DRUGS (9)
  1. SANDOSTATIN LAR DEPOT [Suspect]
     Active Substance: OCTREOTIDE ACETATE
     Indication: CARCINOID TUMOUR
     Dosage: 20 MG, QMO
     Route: 030
     Dates: start: 20091231
  2. DILTIAZEM [Concomitant]
     Active Substance: DILTIAZEM
     Indication: PRODUCT USED FOR UNKNOWN INDICATION
     Route: 065
  3. SANDOSTATIN LAR DEPOT [Suspect]
     Active Substance: OCTREOTIDE ACETATE
     Dosage: 30 MG, QMO
     Route: 030
  4. SANDOSTATIN LAR DEPOT [Suspect]
     Active Substance: OCTREOTIDE ACETATE
     Dosage: 30 MG, QMO
     Route: 030
  5. SANDOSTATIN LAR DEPOT [Suspect]
     Active Substance: OCTREOTIDE ACETATE
     Dosage: 30 MG, TIW (EVERY 3 WEEKS)
     Route: 030
  6. SANDOSTATIN LAR DEPOT [Suspect]
     Active Substance: OCTREOTIDE ACETATE
     Dosage: 20 MG, QMO
     Route: 030
     Dates: start: 20120103
  7. VASOTEC [Concomitant]
     Active Substance: ENALAPRIL MALEATE
     Indication: PRODUCT USED FOR UNKNOWN INDICATION
     Route: 065
  8. THYROXIN [Concomitant]
     Active Substance: LEVOTHYROXINE
     Indication: PRODUCT USED FOR UNKNOWN INDICATION
     Route: 065
  9. MULTI VITAMIN [Concomitant]
     Active Substance: VITAMINS
     Indication: PRODUCT USED FOR UNKNOWN INDICATION
     Route: 065

REACTIONS (32)
  - Intestinal obstruction [Unknown]
  - Blood pressure increased [Unknown]
  - Cholelithiasis [Unknown]
  - Pain [Unknown]
  - Glossodynia [Recovered/Resolved]
  - Injection site irritation [Unknown]
  - Diarrhoea [Unknown]
  - Inappropriate schedule of drug administration [Unknown]
  - Blood pressure fluctuation [Unknown]
  - Injection site inflammation [Recovering/Resolving]
  - Groin pain [Recovered/Resolved]
  - Gait disturbance [Unknown]
  - Anxiety [Unknown]
  - Laryngitis [Unknown]
  - Injection site bruising [Unknown]
  - Nausea [Unknown]
  - Asthenia [Unknown]
  - Malaise [Unknown]
  - Abdominal pain [Recovered/Resolved]
  - Burning sensation [Recovered/Resolved]
  - Stress [Unknown]
  - Headache [Unknown]
  - Influenza like illness [Recovered/Resolved]
  - Injection site pain [Recovering/Resolving]
  - Neuralgia [Unknown]
  - Poor quality sleep [Unknown]
  - Fatigue [Recovering/Resolving]
  - Alopecia [Unknown]
  - Axillary mass [Unknown]
  - Abdominal rigidity [Unknown]
  - Flushing [Recovered/Resolved]
  - General physical health deterioration [Unknown]

NARRATIVE: CASE EVENT DATE: 20120103
